FAERS Safety Report 8144961-6 (Version None)
Quarter: 2012Q1

REPORT INFORMATION
  Report Type: 
  Country: None (occurrence: None)
  Receive Date: 20120217
  Receipt Date: 20120209
  Transmission Date: 20120608
  Serious: Yes (Hospitalization)
  Sender: FDA-Public Use
  Company Number: ES-MERCK-1202USA02022

PATIENT
  Age: 35 Year
  Sex: Male
  Weight: 90 kg

DRUGS (8)
  1. MODURETIC 5-50 [Suspect]
     Route: 048
     Dates: start: 20110314, end: 20120114
  2. PLETAL [Suspect]
     Route: 048
     Dates: start: 20120112, end: 20120114
  3. TAMSULOSIN HYDROCHLORIDE [Suspect]
     Route: 048
     Dates: start: 20110201
  4. PURITY LIPOTROL [Concomitant]
     Route: 048
     Dates: start: 20111001
  5. CANDESARTAN CILEXETIL [Suspect]
     Route: 048
     Dates: start: 20110201, end: 20120114
  6. SIMVASTATIN [Concomitant]
     Route: 048
     Dates: start: 20110201
  7. OMEPRAZOLE [Concomitant]
     Route: 048
     Dates: start: 20110201
  8. METFORMIN [Concomitant]
     Route: 048
     Dates: start: 20110212

REACTIONS (3)
  - SYNCOPE [None]
  - HYPOTENSION [None]
  - DRUG INTERACTION [None]
